FAERS Safety Report 11089977 (Version 1)
Quarter: 2015Q2

REPORT INFORMATION
  Report Type: Spontaneous
  Country: IT (occurrence: None)
  Receive Date: 20150501
  Receipt Date: 20150501
  Transmission Date: 20150821
  Serious: Yes (Hospitalization)
  Sender: FDA-Public Use
  Company Number: DEP_02718_2015

PATIENT
  Age: 54 Year
  Sex: Male

DRUGS (8)
  1. BENTELAN [Concomitant]
     Active Substance: BETAMETHASONE SODIUM PHOSPHATE
  2. SALINE [Concomitant]
     Active Substance: SODIUM CHLORIDE
  3. TRIMETON [Concomitant]
     Active Substance: CHLORPHENIRAMINE MALEATE
  4. FLEBOCORTID [Concomitant]
  5. RANITIDINE [Concomitant]
     Active Substance: RANITIDINE\RANITIDINE HYDROCHLORIDE
  6. VOLTFAST [Suspect]
     Active Substance: DICLOFENAC POTASSIUM
     Indication: BACK PAIN
     Route: 048
     Dates: start: 20150319
  7. PANTOPRAZOLE [Concomitant]
     Active Substance: PANTOPRAZOLE SODIUM
  8. LEVOCETIRIZINE [Concomitant]
     Active Substance: LEVOCETIRIZINE

REACTIONS (5)
  - Hypersensitivity [None]
  - Dizziness [None]
  - Pruritus [None]
  - Hyperhidrosis [None]
  - Dyspnoea [None]

NARRATIVE: CASE EVENT DATE: 20150319
